FAERS Safety Report 17293160 (Version 1)
Quarter: 2020Q1

REPORT INFORMATION
  Report Type: Report from Study
  Country: MX (occurrence: MX)
  Receive Date: 20200121
  Receipt Date: 20200121
  Transmission Date: 20200409
  Serious: Yes (Hospitalization)
  Sender: FDA-Public Use
  Company Number: NVSC2019MX042712

PATIENT
  Age: 74 Year
  Sex: Male
  Weight: 65 kg

DRUGS (4)
  1. GALVUMET [Suspect]
     Active Substance: METFORMIN HYDROCHLORIDE\VILDAGLIPTIN
     Indication: DIABETES MELLITUS
     Dosage: UNK
     Route: 048
  2. ENTRESTO [Suspect]
     Active Substance: SACUBITRIL\VALSARTAN
     Indication: FLUID RETENTION
     Dosage: 0.5 DF (100 MG), BID (IN THE MORNING AND AT NIGHT)
     Route: 048
     Dates: start: 20191111
  3. ENTRESTO [Suspect]
     Active Substance: SACUBITRIL\VALSARTAN
     Indication: CARDIAC FAILURE
  4. ENTRESTO [Suspect]
     Active Substance: SACUBITRIL\VALSARTAN
     Indication: CARDIAC DISORDER
     Dosage: 0.5 MG, BID
     Route: 048

REACTIONS (4)
  - Gastrooesophageal reflux disease [Recovering/Resolving]
  - Product prescribing error [Unknown]
  - Wrong technique in product usage process [Unknown]
  - Hiatus hernia [Unknown]

NARRATIVE: CASE EVENT DATE: 201910
